FAERS Safety Report 4583991-8 (Version None)
Quarter: 2005Q1

REPORT INFORMATION
  Report Type: 
  Country: None (occurrence: None)
  Receive Date: 20050125
  Receipt Date: 20041104
  Transmission Date: 20050727
  Serious: No
  Sender: FDA-Public Use
  Company Number: USA041183241

PATIENT
  Age: 62 Year
  Sex: Female
  Weight: 52 kg

DRUGS (18)
  1. FORTEO [Suspect]
     Indication: OSTEOPOROSIS
     Dosage: 20 UG/ 1 DAY
     Dates: start: 20041001
  2. CALCIUM GLUCONATE [Concomitant]
  3. NEXIUM [Concomitant]
  4. CELEBREX [Concomitant]
  5. XANAX [Concomitant]
  6. NEURONTIN [Concomitant]
  7. XOPENEX [Concomitant]
  8. MUCOMYST (ACETYLCYSTEINE SODIUM) [Concomitant]
  9. ADVAIR DISKUS 100/50 [Concomitant]
  10. PLAVIX [Concomitant]
  11. PLAQUENIL [Concomitant]
  12. CATAPRES [Concomitant]
  13. SYNTHROID [Concomitant]
  14. LOTREL [Concomitant]
  15. MEDROL [Concomitant]
  16. HYDROCHLOROZIDE (HYDROCLOROTHIAZIDE) [Concomitant]
  17. LEXAPRO [Concomitant]
  18. SSKI [Concomitant]

REACTIONS (1)
  - MUSCLE TWITCHING [None]
